FAERS Safety Report 4449958-5 (Version None)
Quarter: 2004Q3

REPORT INFORMATION
  Report Type: 
  Country: None (occurrence: None)
  Receive Date: 20040803
  Receipt Date: 20040603
  Transmission Date: 20050211
  Serious: Yes (Other)
  Sender: FDA-Public Use
  Company Number: 2004217063US

PATIENT

DRUGS (1)
  1. CAMPTOSAR [Suspect]
     Dosage: 500 MG/M2

REACTIONS (4)
  - BLOOD BILIRUBIN INCREASED [None]
  - BLOOD CREATININE INCREASED [None]
  - OVERDOSE [None]
  - RENAL FAILURE [None]
